FAERS Safety Report 4646336-0 (Version None)
Quarter: 2005Q2

REPORT INFORMATION
  Report Type: 
  Country: None (occurrence: None)
  Receive Date: 20050422
  Receipt Date: 20050412
  Transmission Date: 20051028
  Serious: Yes (Hospitalization)
  Sender: FDA-Public Use
  Company Number: 05P-028-0291656-00

PATIENT
  Age: 63 Year
  Sex: Female
  Weight: 40 kg

DRUGS (11)
  1. HUMIRA [Suspect]
     Indication: RHEUMATOID ARTHRITIS
     Dosage: 40 MG, 1 IN 2 WK, SUBCUTANEOUS
     Route: 058
     Dates: end: 20050324
  2. TERBUTALINE SULFATE [Concomitant]
  3. FORMOTEROL FUMARATE [Concomitant]
  4. ALENDRONATE SODIUM [Concomitant]
  5. CALCIUM GLUCONATE [Concomitant]
  6. CALCIUM WITH VITAMIN D [Concomitant]
  7. OXYCOCET [Concomitant]
  8. AMITRIPTYLINE HCL TAB [Concomitant]
  9. FENTANYL [Concomitant]
  10. METHOTREXATE SODIUM [Concomitant]
  11. FOLIC ACID [Concomitant]

REACTIONS (5)
  - DYSPNOEA [None]
  - NASAL CONGESTION [None]
  - PARAESTHESIA [None]
  - PRESBYOPIA [None]
  - VIRAL INFECTION [None]
